FAERS Safety Report 10922244 (Version 1)
Quarter: 2015Q1

REPORT INFORMATION
  Report Type: Spontaneous
  Country: US (occurrence: US)
  Receive Date: 20150317
  Receipt Date: 20150317
  Transmission Date: 20150721
  Serious: Yes (Other)
  Sender: FDA-Public Use
  Company Number: US-MERCK-1503USA003060

PATIENT
  Age: 17 Year
  Sex: Female

DRUGS (6)
  1. LEUCOVORIN [Concomitant]
     Active Substance: LEUCOVORIN
     Dosage: 500 MG/M2, FOR 4 DAYS
     Route: 042
  2. DOCETAXEL. [Concomitant]
     Active Substance: DOCETAXEL
     Dosage: 90 MG/M2, ON DAY 1
  3. FLUOROURACIL. [Concomitant]
     Active Substance: FLUOROURACIL
     Dosage: 700 MG/M2, FOR 4 DAYS
  4. VORINOSTAT [Suspect]
     Active Substance: VORINOSTAT
     Indication: NEOPLASM MALIGNANT
     Dosage: 200 MG, QD FOR 1 WEEK
     Route: 048
  5. VORINOSTAT [Suspect]
     Active Substance: VORINOSTAT
     Dosage: 300 MG, QD FOR 4 WEEKS
     Route: 048
  6. CISPLATIN. [Concomitant]
     Active Substance: CISPLATIN
     Dosage: 100 MG/M2, ON DAY 1

REACTIONS (1)
  - Thrombocytopenia [Unknown]
